FAERS Safety Report 8300774-3 (Version None)
Quarter: 2012Q2

REPORT INFORMATION
  Report Type: 
  Country: None (occurrence: None)
  Receive Date: 20120420
  Receipt Date: 20120417
  Transmission Date: 20120825
  Serious: Yes (Hospitalization)
  Sender: FDA-Public Use
  Company Number: PHHY2012DE027970

PATIENT
  Sex: Male
  Weight: 101 kg

DRUGS (5)
  1. BISOPROLOL FUMARATE [Concomitant]
     Indication: HYPERTENSION
     Dosage: 10 MG, PER DAY
     Route: 048
     Dates: start: 20080124
  2. PANTOPRAZOLE [Concomitant]
     Indication: GASTROOESOPHAGEAL REFLUX DISEASE
     Dosage: 60 MG, PER DAY
     Route: 048
     Dates: start: 20030818
  3. AMLODIPINE [Concomitant]
     Indication: HYPERTENSION
     Dosage: 5 MG, PER DAY
     Route: 048
     Dates: start: 20120225
  4. ANTIHYPERTENSIVES [Concomitant]
  5. RASILEZ HCT [Suspect]
     Indication: HYPERTENSION
     Dosage: 300/12.5 MG PER DAY
     Route: 048
     Dates: start: 20090713, end: 20120410

REACTIONS (4)
  - NAUSEA [None]
  - DYSPNOEA [None]
  - DIABETES MELLITUS [None]
  - OEDEMA [None]
